FAERS Safety Report 9703922 (Version 1)
Quarter: 2013Q4

REPORT INFORMATION
  Report Type: Spontaneous
  Country: US (occurrence: US)
  Receive Date: 20131122
  Receipt Date: 20131122
  Transmission Date: 20140711
  Serious: No
  Sender: FDA-Public Use
  Company Number: US-PFIZER INC-2013334251

PATIENT
  Age: 78 Year
  Sex: Female
  Weight: 54.42 kg

DRUGS (2)
  1. LYRICA [Suspect]
     Indication: ORAL PAIN
     Dosage: 100 MG, 2X/DAY
     Dates: start: 20131112
  2. ADVAIR HFA [Suspect]
     Indication: DYSPNOEA
     Dosage: UNK, 2X/DAY

REACTIONS (4)
  - Dizziness [Recovered/Resolved]
  - Fatigue [Not Recovered/Not Resolved]
  - Constipation [Not Recovered/Not Resolved]
  - Oral pain [Unknown]
